FAERS Safety Report 25980201 (Version 1)
Quarter: 2025Q4

REPORT INFORMATION
  Report Type: Spontaneous
  Country: US (occurrence: None)
  Receive Date: 20251030
  Receipt Date: 20251030
  Transmission Date: 20260118
  Serious: Yes (Hospitalization)
  Sender: FDA-CTU
  Company Number: None

PATIENT
  Sex: Female

DRUGS (2)
  1. XOLAIR [Suspect]
     Active Substance: OMALIZUMAB
     Indication: Asthma
     Dosage: INJECT 1 SYRINGE WITH ONE 150MG SYRINGE UNDER THE SKIN (SUBCUTANEOUS INJECTION) EVERY TWO WEEKS
     Route: 058
     Dates: start: 20210312
  2. VALSARTAN [Concomitant]
     Active Substance: VALSARTAN

REACTIONS (3)
  - Impaired quality of life [None]
  - Therapy non-responder [None]
  - Therapy interrupted [None]
